FAERS Safety Report 18353961 (Version 1)
Quarter: 2020Q4

REPORT INFORMATION
  Report Type: Spontaneous
  Country: US (occurrence: US)
  Receive Date: 20201005
  Receipt Date: 20201005
  Transmission Date: 20210114
  Serious: No
  Sender: FDA-Public Use
  Company Number: None

PATIENT
  Age: 36 Year
  Sex: Female

DRUGS (1)
  1. EPCLUSA [Suspect]
     Active Substance: SOFOSBUVIR\VELPATASVIR
     Indication: HEPATITIS C
     Dosage: OTHER DOSE:400-100MG;?
     Route: 048
     Dates: start: 202009

REACTIONS (3)
  - Haemorrhagic disorder [None]
  - Drug abuse [None]
  - Menstrual disorder [None]

NARRATIVE: CASE EVENT DATE: 20200916
